FAERS Safety Report 8782890 (Version 1)
Quarter: 2012Q4

REPORT INFORMATION
  Report Type: 
  Country: US (occurrence: US)
  Receive Date: 20120913
  Receipt Date: 20120913
  Transmission Date: 20130627
  Serious: Yes (Death)
  Sender: FDA-Public Use
  Company Number: PHHY2012US079509

PATIENT
  Age: 37 Year
  Sex: Male

DRUGS (5)
  1. TRAMADOL [Suspect]
     Indication: PAIN
  2. METHYLENEDIOXYPYROVALERONE HYDROCHLORIDE [Suspect]
  3. CAFFEINE [Concomitant]
  4. NALOXONE [Concomitant]
     Dosage: 1 mg, UNK
     Route: 042
  5. EPINEPHRINE [Concomitant]

REACTIONS (10)
  - Death [Fatal]
  - Drug ineffective [Unknown]
  - Coronary artery stenosis [None]
  - Blood glucose increased [None]
  - Cardiac arrest [None]
  - Rib fracture [None]
  - Blood ethanol increased [None]
  - Arrhythmia [None]
  - Toxicity to various agents [None]
  - Tachycardia [None]
